FAERS Safety Report 5822413-3 (Version None)
Quarter: 2008Q3

REPORT INFORMATION
  Report Type: 
  Country: None (occurrence: None)
  Receive Date: 20080721
  Receipt Date: 20080715
  Transmission Date: 20090109
  Serious: Yes (Hospitalization)
  Sender: FDA-Public Use
  Company Number: 2008SP014243

PATIENT
  Age: 49 Year
  Sex: Male

DRUGS (7)
  1. DIPROSTENE (BETAMETHASONE SODIUM PHOSPHATE/DIPROPIONATE) (BETAMETHASON [Suspect]
     Indication: DRUG USE FOR UNKNOWN INDICATION
     Dosage: IM
     Route: 030
     Dates: start: 20080211
  2. LYRICA [Concomitant]
  3. SEROPAM [Concomitant]
  4. LEXOMIL [Concomitant]
  5. DURAGESIC-100 [Concomitant]
  6. THERALENE [Concomitant]
  7. NEXIUM [Concomitant]

REACTIONS (2)
  - HYPOKALAEMIA [None]
  - QUADRIPARESIS [None]
